FAERS Safety Report 5202419-8 (Version None)
Quarter: 2006Q4

REPORT INFORMATION
  Report Type: 
  Country: None (occurrence: None)
  Receive Date: 20061010
  Receipt Date: 20060130
  Transmission Date: 20070319
  Serious: Yes (Death)
  Sender: FDA-Public Use
  Company Number: 2006P1000082

PATIENT
  Age: 65 Year
  Sex: Male
  Weight: 81 kg

DRUGS (4)
  1. RETEPLASE (RETEPLASE) [Suspect]
     Indication: ACUTE MYOCARDIAL INFARCTION
     Dosage: 5 IU; 1X; IV
     Route: 042
     Dates: start: 20060112, end: 20060112
  2. ABCIXIMAB (ABCIXIMAB) [Suspect]
     Indication: ACUTE MYOCARDIAL INFARCTION
     Dosage: 10 ML; 1X; IV;  1 ML, IV
     Route: 042
     Dates: start: 20060112, end: 20060112
  3. ABCIXIMAB (ABCIXIMAB) [Suspect]
     Indication: ACUTE MYOCARDIAL INFARCTION
     Dosage: 10 ML; 1X; IV;  1 ML, IV
     Route: 042
     Dates: start: 20060112, end: 20060112
  4. HEPARIN [Concomitant]

REACTIONS (1)
  - MYOCARDIAL RUPTURE [None]
